FAERS Safety Report 6400694-5 (Version None)
Quarter: 2009Q4

REPORT INFORMATION
  Report Type: 
  Country: None (occurrence: None)
  Receive Date: 20091014
  Receipt Date: 20091006
  Transmission Date: 20100525
  Serious: Yes (Other)
  Sender: FDA-Public Use
  Company Number: FR-PFIZER INC-2009280089

PATIENT

DRUGS (5)
  1. TAHOR [Suspect]
     Dosage: 40 MG, UNK
     Dates: start: 20090101, end: 20090101
  2. DIAMICRON [Concomitant]
  3. TENORMIN [Concomitant]
     Dosage: UNK
  4. KARDEGIC [Concomitant]
  5. COVERSYL [Concomitant]
     Dosage: UNK

REACTIONS (1)
  - CYTOLYTIC HEPATITIS [None]
